FAERS Safety Report 4948709-5 (Version None)
Quarter: 2006Q1

REPORT INFORMATION
  Report Type: 
  Country: None (occurrence: None)
  Receive Date: 20060313
  Receipt Date: 20060228
  Transmission Date: 20060701
  Serious: Yes (Disabling, Other)
  Sender: FDA-Public Use
  Company Number: 2005084004

PATIENT
  Age: 67 Year
  Sex: Male
  Weight: 71.2147 kg

DRUGS (5)
  1. SILDENAFIL CITRATE [Suspect]
     Indication: ILL-DEFINED DISORDER
     Dosage: 100 MG, AS NECESSARY, ORAL
     Route: 048
     Dates: start: 19990301
  2. DIAZIDE (GLICLAZIDE) [Concomitant]
  3. NAPROXEN SODIUM [Concomitant]
  4. PAPAVERINE HYDROCHLORIDE (PAPAVERINE HYDROCHLORIDE) [Concomitant]
  5. NU-TRIAZIDE (HYDROCHLOROTHIAZIDE, TRIAMTERENE) [Concomitant]

REACTIONS (3)
  - BLINDNESS UNILATERAL [None]
  - OCULAR VASCULAR DISORDER [None]
  - OPTIC NERVE DISORDER [None]
